FAERS Safety Report 8283475 (Version 2)
Quarter: 2013Q2

REPORT INFORMATION
  Report Type: Spontaneous
  Country: US (occurrence: None)
  Receive Date: 20111122
  Receipt Date: 20120703
  Transmission Date: 20140414
  Serious: Yes (Other)
  Sender: FDA-Public Use
  Company Number: PHHY2011US63171

PATIENT
  Age: 51 Year
  Sex: Male
  Weight: 68 kg

DRUGS (8)
  1. GILENYA [Suspect]
     Indication: RELAPSING-REMITTING MULTIPLE SCLEROSIS
     Dosage: 0.5 MG, ORAL
     Route: 048
     Dates: start: 20110708
  2. PAROXETINE HYDROCHLORIDE [Concomitant]
  3. PROVIGIL [Concomitant]
  4. CALTRATE [Concomitant]
  5. LAMOTRIGINE (LAMOTRIGINE) [Concomitant]
  6. CITALOPRAM HYDROBROMIDE [Concomitant]
  7. VITAMIN D (ERGOCALCIFEROL) [Concomitant]
  8. VITAMIN B12 [Concomitant]

REACTIONS (5)
  - OPTIC NEURITIS [None]
  - HYPOAESTHESIA [None]
  - VISION BLURRED [None]
  - MULTIPLE SCLEROSIS RELAPSE [None]
  - PRURITUS [None]
